FAERS Safety Report 15568886 (Version 7)
Quarter: 2022Q2

REPORT INFORMATION
  Report Type: Other
  Country: DE (occurrence: None)
  Receive Date: 20181031
  Receipt Date: 20220401
  Transmission Date: 20220721
  Serious: Yes (Hospitalization, Other)
  Sender: FDA-Public Use
  Company Number: DE-ROCHE-2161495

PATIENT
  Age: 48 Year
  Sex: Female

DRUGS (8)
  1. OCREVUS [Suspect]
     Active Substance: OCRELIZUMAB
     Indication: Secondary progressive multiple sclerosis
     Dosage: SUBSEQUENT DOSE: 01/MAY/2018
     Route: 042
     Dates: start: 20180417, end: 20180417
  2. OCREVUS [Suspect]
     Active Substance: OCRELIZUMAB
     Dosage: SUBSEQUENT DOSE: 27/NOV/2019
     Route: 042
     Dates: start: 20181022
  3. OCREVUS [Suspect]
     Active Substance: OCRELIZUMAB
     Route: 042
     Dates: start: 20180417, end: 20191127
  4. CHOLECALCIFEROL [Concomitant]
     Active Substance: CHOLECALCIFEROL
  5. LYRICA [Concomitant]
     Active Substance: PREGABALIN
     Dosage: 1-0-2, 100-200 MG (150 MG)
  6. DALFAMPRIDINE [Concomitant]
     Active Substance: DALFAMPRIDINE
     Dosage: 1-0-1
  7. INFLUENZA VIRUS VACCINE [Concomitant]
     Active Substance: INFLUENZA VIRUS VACCINE
     Dates: start: 20180903
  8. LACTULOSE [Concomitant]
     Active Substance: LACTULOSE

REACTIONS (13)
  - Multiple sclerosis relapse [Not Recovered/Not Resolved]
  - Rash erythematous [Recovered/Resolved]
  - Nasopharyngitis [Recovered/Resolved]
  - Blood immunoglobulin M increased [Not Recovered/Not Resolved]
  - Bronchitis [Recovered/Resolved]
  - Viral pharyngitis [Recovered/Resolved]
  - Fatigue [Not Recovered/Not Resolved]
  - Drug ineffective [Unknown]
  - Infection susceptibility increased [Recovered/Resolved]
  - Cystitis noninfective [Recovered/Resolved]
  - Upper respiratory tract infection [Recovered/Resolved]
  - Arthralgia [Recovered/Resolved]
  - Joint range of motion decreased [Not Recovered/Not Resolved]

NARRATIVE: CASE EVENT DATE: 20180613
